FAERS Safety Report 4657566-6 (Version None)
Quarter: 2005Q2

REPORT INFORMATION
  Report Type: 
  Country: None (occurrence: None)
  Receive Date: 20050405
  Receipt Date: 20050129
  Transmission Date: 20051028
  Serious: Yes (Other)
  Sender: FDA-Public Use
  Company Number: 2005001700

PATIENT
  Age: 48 Year
  Sex: Male

DRUGS (10)
  1. GEODON [Suspect]
     Indication: MANIA
     Dosage: 120 MG (40 MG, 2 IN 1 D), ORAL
     Route: 048
     Dates: start: 20040924, end: 20041221
  2. VENLAFAXINE HCL [Concomitant]
  3. HYDROXYZINE HYDROCHLORIDE [Concomitant]
  4. CLONAZEPAM [Concomitant]
  5. ROSIGLITAZONE MALEATE [Concomitant]
  6. METFORMIN HCL [Concomitant]
  7. ATENOLOL [Concomitant]
  8. ATORVASTATIN CALCIUM [Concomitant]
  9. FENOFIBRATE [Concomitant]
  10. TRIOBE (CYANOCOBALAMIN, FOLIC ACID, PYRIDOXINE) [Concomitant]

REACTIONS (5)
  - ANXIETY [None]
  - BLOOD GLUCOSE INCREASED [None]
  - DISEASE RECURRENCE [None]
  - INSOMNIA [None]
  - MANIA [None]
